FAERS Safety Report 6925385-3 (Version None)
Quarter: 2010Q3

REPORT INFORMATION
  Report Type: 
  Country: None (occurrence: None)
  Receive Date: 20100810
  Receipt Date: 20100727
  Transmission Date: 20110219
  Serious: Yes (Hospitalization)
  Sender: FDA-Public Use
  Company Number: 003576

PATIENT
  Sex: Female

DRUGS (21)
  1. CERTOLIZUMAB PEGOL (CERTOLIZUMAB PEGOL) [Suspect]
     Indication: RHEUMATOID ARTHRITIS
     Dosage: (SUBCUTANEOUS), (200 MG 1X/2 SUBCUTANEOUS)
     Route: 058
     Dates: start: 20090611, end: 20090917
  2. CERTOLIZUMAB PEGOL (CERTOLIZUMAB PEGOL) [Suspect]
     Indication: RHEUMATOID ARTHRITIS
     Dosage: (SUBCUTANEOUS), (200 MG 1X/2 SUBCUTANEOUS)
     Route: 058
     Dates: start: 20091001, end: 20100527
  3. CERTOLIZUMAB PEGOL (CERTOLIZUMAB PEGOL) [Suspect]
     Indication: RHEUMATOID ARTHRITIS
     Dosage: (SUBCUTANEOUS), (200 MG 1X/2 SUBCUTANEOUS)
     Route: 058
     Dates: start: 20100101
  4. CERTOLIZUMAB PEGOL (CERTOLIZUMAB PEGOL) [Suspect]
     Indication: RHEUMATOID ARTHRITIS
     Dosage: (SUBCUTANEOUS), (200 MG 1X/2 SUBCUTANEOUS)
     Route: 058
     Dates: start: 20100722
  5. METHOTREXATE [Concomitant]
  6. LOXOPROFEN SODIUM [Concomitant]
  7. CANDESARTAN CILEXETIL [Concomitant]
  8. DICLOFENAC [Concomitant]
  9. RABEPRAZOLE SODIUM [Concomitant]
  10. REBAMIPIDE [Concomitant]
  11. MOSAPRIDE [Concomitant]
  12. SCOPOLAMINE /00008701/ [Concomitant]
  13. TIQUIZIUM BROMIDE [Concomitant]
  14. FOLIC ACID [Concomitant]
  15. CELECOXIB [Concomitant]
  16. PREDNISOLONE [Concomitant]
  17. KETOPROFEN [Concomitant]
  18. CANDESARTAN CILEXETIL [Concomitant]
  19. ISONIAZID [Concomitant]
  20. VALPROATE SODIUM [Concomitant]
  21. BETAMETHASONE [Concomitant]

REACTIONS (10)
  - ACCIDENT [None]
  - ADHESION [None]
  - CEREBRAL ARTERY EMBOLISM [None]
  - CONSTIPATION [None]
  - CONTUSION [None]
  - FALL [None]
  - GAIT DISTURBANCE [None]
  - INTRACRANIAL ANEURYSM [None]
  - MENINGIOMA [None]
  - NECROSIS [None]
